FAERS Safety Report 16557062 (Version 1)
Quarter: 2019Q3

REPORT INFORMATION
  Report Type: Spontaneous
  Country: IT (occurrence: IT)
  Receive Date: 20190711
  Receipt Date: 20190711
  Transmission Date: 20191004
  Serious: Yes (Hospitalization)
  Sender: FDA-Public Use
  Company Number: IT-ASTRAZENECA-2019SE96385

PATIENT
  Age: 78 Year
  Sex: Male

DRUGS (6)
  1. DEPAKIN [Suspect]
     Active Substance: VALPROATE SODIUM
     Route: 048
  2. NOZINAN [Suspect]
     Active Substance: LEVOMEPROMAZINE
     Route: 048
  3. TRIATEC [Concomitant]
  4. PRADIF [Concomitant]
     Active Substance: TAMSULOSIN HYDROCHLORIDE
  5. SEROQUEL [Suspect]
     Active Substance: QUETIAPINE FUMARATE
     Route: 048
  6. BISOPROLOL HEMIFUMARATE [Concomitant]
     Active Substance: BISOPROLOL FUMARATE

REACTIONS (5)
  - Asthenia [Not Recovered/Not Resolved]
  - Dehydration [Not Recovered/Not Resolved]
  - Acute kidney injury [Not Recovered/Not Resolved]
  - Confusional state [Not Recovered/Not Resolved]
  - Faecaloma [Not Recovered/Not Resolved]

NARRATIVE: CASE EVENT DATE: 20190228
